FAERS Safety Report 18787890 (Version 1)
Quarter: 2021Q1

REPORT INFORMATION
  Report Type: Spontaneous
  Country: US (occurrence: US)
  Receive Date: 20210126
  Receipt Date: 20210126
  Transmission Date: 20210419
  Serious: No
  Sender: FDA-Public Use
  Company Number: None

PATIENT
  Sex: Female

DRUGS (18)
  1. IBUPROFEN. [Concomitant]
     Active Substance: IBUPROFEN
  2. NALTREXONE [Concomitant]
     Active Substance: NALTREXONE
  3. PREDISONE, [Concomitant]
  4. SAVELLA [Concomitant]
     Active Substance: MILNACIPRAN HYDROCHLORIDE
  5. BACLOFEN. [Concomitant]
     Active Substance: BACLOFEN
  6. BUPROPM [Concomitant]
  7. CITALOPRAM [Concomitant]
     Active Substance: CITALOPRAM HYDROBROMIDE
  8. DIAZEPAM. [Concomitant]
     Active Substance: DIAZEPAM
  9. OCREVUS [Concomitant]
     Active Substance: OCRELIZUMAB
  10. DALFAMPRIDINE. [Suspect]
     Active Substance: DALFAMPRIDINE
     Indication: MULTIPLE SCLEROSIS
     Route: 048
     Dates: start: 20191218
  11. ONDSANSETRON [Concomitant]
     Active Substance: ONDANSETRON
  12. RITULXAN [Concomitant]
  13. METHYPHEID [Concomitant]
  14. OXYBUTYNIN. [Concomitant]
     Active Substance: OXYBUTYNIN CHLORIDE
  15. CALCIUM [Concomitant]
     Active Substance: CALCIUM
  16. GABAPENTIN. [Concomitant]
     Active Substance: GABAPENTIN
  17. MYRETRIQ [Concomitant]
  18. VITAMIN B12 [Concomitant]
     Active Substance: CYANOCOBALAMIN

REACTIONS (2)
  - Fatigue [None]
  - Bladder disorder [None]
